FAERS Safety Report 10395409 (Version 6)
Quarter: 2015Q1

REPORT INFORMATION
  Report Type: Spontaneous
  Country: US (occurrence: US)
  Receive Date: 20140820
  Receipt Date: 20150203
  Transmission Date: 20150720
  Serious: Yes (Hospitalization)
  Sender: FDA-Public Use
  Company Number: US-PFIZER INC-2014229119

PATIENT
  Age: 74 Year
  Sex: Female

DRUGS (8)
  1. XALKORI [Suspect]
     Active Substance: CRIZOTINIB
     Dosage: 250 MG, 1X/DAY (ONCE EVERY MORNING )
     Route: 048
     Dates: start: 20140813
  2. XALKORI [Suspect]
     Active Substance: CRIZOTINIB
     Dosage: 200 MG, 1X/DAY (AT BEDTIME)
     Route: 048
     Dates: start: 20140813
  3. COUMADIN [Concomitant]
     Active Substance: WARFARIN SODIUM
     Indication: PULMONARY EMBOLISM
     Dosage: 2.5 MG 5X/WEEK, 5 MG 2X/WEEK
     Route: 048
     Dates: start: 201402
  4. XALKORI [Suspect]
     Active Substance: CRIZOTINIB
     Indication: LUNG CANCER METASTATIC
     Dosage: 250 MG, 2X/DAY
     Route: 048
     Dates: start: 20140806
  5. CARDIZEM CD [Concomitant]
     Active Substance: DILTIAZEM HYDROCHLORIDE
     Indication: HYPERTENSION
  6. XALKORI [Suspect]
     Active Substance: CRIZOTINIB
     Dosage: 200 MG AM, 250 MG PM
     Route: 048
  7. CARDIZEM CD [Concomitant]
     Active Substance: DILTIAZEM HYDROCHLORIDE
     Indication: TACHYCARDIA
     Dosage: 180 MG, DAILY
     Route: 048
     Dates: start: 2014, end: 201409
  8. LOPERAMIDE HCL [Concomitant]
     Active Substance: LOPERAMIDE HYDROCHLORIDE
     Dosage: 2 MG, AS NEEDED
     Route: 048
     Dates: start: 2014

REACTIONS (10)
  - Hypersensitivity [Recovered/Resolved]
  - Diarrhoea [Not Recovered/Not Resolved]
  - Dysgeusia [Not Recovered/Not Resolved]
  - Dyspnoea [Recovered/Resolved]
  - Peripheral swelling [Recovered/Resolved]
  - Anxiety [Recovered/Resolved]
  - Nausea [Not Recovered/Not Resolved]
  - Neuropathy peripheral [Not Recovered/Not Resolved]
  - Chest pain [Recovered/Resolved]
  - Vomiting [Recovered/Resolved]

NARRATIVE: CASE EVENT DATE: 201408
